FAERS Safety Report 6982995-5 (Version None)
Quarter: 2010Q3

REPORT INFORMATION
  Report Type: 
  Country: None (occurrence: None)
  Receive Date: 20100914
  Receipt Date: 20100511
  Transmission Date: 20110219
  Serious: Yes (Other)
  Sender: FDA-Public Use
  Company Number: US-PFIZER INC-2010059683

PATIENT
  Sex: Female
  Weight: 65 kg

DRUGS (8)
  1. LYRICA [Suspect]
     Indication: FIBROMYALGIA
     Dosage: UNK
     Route: 048
     Dates: start: 20090101
  2. NEURONTIN [Suspect]
     Indication: NEUROPATHY PERIPHERAL
     Dosage: UNK
  3. CYMBALTA [Suspect]
     Indication: FIBROMYALGIA
     Dosage: UNK, DAILY, 1X/DAY
     Route: 048
     Dates: start: 20090101
  4. NAPROSYN [Suspect]
     Indication: NEUROPATHY PERIPHERAL
     Dosage: UNK
  5. ZOLOFT [Concomitant]
     Indication: DEPRESSION
     Dosage: 100 MG, 1X/DAY
  6. VALSARTAN [Concomitant]
     Indication: HYPERTENSION
     Dosage: UNK
  7. PREMARIN [Concomitant]
     Indication: HYSTERECTOMY
     Dosage: .9 MG, 1X/DAY
     Route: 048
  8. AMBIEN [Concomitant]
     Indication: SLEEP DISORDER
     Dosage: UNK
     Route: 048

REACTIONS (8)
  - ANXIETY [None]
  - BURNING SENSATION [None]
  - DRUG INEFFECTIVE [None]
  - NEUROPATHY PERIPHERAL [None]
  - PAIN IN EXTREMITY [None]
  - PARAESTHESIA [None]
  - RHEUMATOID FACTOR INCREASED [None]
  - SUICIDAL IDEATION [None]
